FAERS Safety Report 13295767 (Version 10)
Quarter: 2018Q1

REPORT INFORMATION
  Report Type: Spontaneous
  Country: US (occurrence: US)
  Receive Date: 20170303
  Receipt Date: 20180315
  Transmission Date: 20180508
  Serious: Yes (Hospitalization, Other)
  Sender: FDA-Public Use
  Company Number: US-ACTELION-A-NJ2017-150669

PATIENT
  Age: 41 Year
  Sex: Female
  Weight: 88.44 kg

DRUGS (3)
  1. OPSUMIT [Suspect]
     Active Substance: MACITENTAN
     Indication: PULMONARY ARTERIAL HYPERTENSION
     Dosage: 10 MG, QD
     Route: 048
     Dates: start: 20141110
  2. ADEMPAS [Concomitant]
     Active Substance: RIOCIGUAT
  3. REMODULIN [Concomitant]
     Active Substance: TREPROSTINIL
     Route: 058

REACTIONS (11)
  - Skin infection [Unknown]
  - Catheter site infection [Recovered/Resolved]
  - Breast cellulitis [Recovered/Resolved]
  - Lung transplant [Unknown]
  - Dyspnoea [Unknown]
  - Pulmonary hypertension [Unknown]
  - Lymphadenopathy [Unknown]
  - Catheter site pruritus [Recovered/Resolved]
  - Medical device change [Unknown]
  - Catheter site discharge [Recovered/Resolved]
  - Catheter site extravasation [Unknown]

NARRATIVE: CASE EVENT DATE: 20161115
